FAERS Safety Report 10276927 (Version 1)
Quarter: 2014Q3

REPORT INFORMATION
  Report Type: Spontaneous
  Country: GB (occurrence: GB)
  Receive Date: 20140703
  Receipt Date: 20140703
  Transmission Date: 20150326
  Serious: Yes (Hospitalization)
  Sender: FDA-Public Use
  Company Number: GB-TEVA-491554ISR

PATIENT
  Age: 76 Year
  Sex: Female
  Weight: 71.5 kg

DRUGS (14)
  1. ALFACALCIDOL [Concomitant]
     Active Substance: ALFACALCIDOL
     Dates: start: 20140312
  2. AMOXICILLIN. [Concomitant]
     Active Substance: AMOXICILLIN
     Dates: start: 20140519, end: 20140526
  3. PARACETAMOL [Concomitant]
     Active Substance: ACETAMINOPHEN
     Dates: start: 20140312, end: 20140324
  4. PARACETAMOL [Concomitant]
     Active Substance: ACETAMINOPHEN
     Dates: start: 20140603, end: 20140615
  5. PARACETAMOL [Concomitant]
     Active Substance: ACETAMINOPHEN
     Dates: start: 20140507, end: 20140519
  6. RENVELA [Concomitant]
     Active Substance: SEVELAMER CARBONATE
     Dates: start: 20140312
  7. AMITRIPTYLINE HYDROCHLORIDE. [Concomitant]
     Active Substance: AMITRIPTYLINE HYDROCHLORIDE
     Dates: start: 20140312
  8. ACICLOVIR [Suspect]
     Active Substance: ACYCLOVIR
     Dosage: 1600 MILLIGRAM DAILY;
  9. CHLORAMPHENICOL [Concomitant]
     Active Substance: CHLORAMPHENICOL
     Dates: start: 20140519, end: 20140616
  10. PARACETAMOL [Concomitant]
     Active Substance: ACETAMINOPHEN
     Dates: start: 20140409, end: 20140421
  11. KALTOSTAT [Concomitant]
     Active Substance: ALGINIC ACID
     Dates: start: 20140612, end: 20140613
  12. FOLIC ACID. [Concomitant]
     Active Substance: FOLIC ACID
     Dates: start: 20140312
  13. RENAVIT [Concomitant]
     Dates: start: 20140602
  14. ZOPICLONE [Concomitant]
     Active Substance: ZOPICLONE
     Dates: start: 20140610, end: 20140611

REACTIONS (3)
  - Dizziness [Recovered/Resolved]
  - Toxicity to various agents [Recovered/Resolved]
  - Malaise [Recovered/Resolved]

NARRATIVE: CASE EVENT DATE: 20140614
